FAERS Safety Report 25715864 (Version 1)
Quarter: 2025Q3

REPORT INFORMATION
  Report Type: Spontaneous
  Country: BR (occurrence: BR)
  Receive Date: 20250822
  Receipt Date: 20250822
  Transmission Date: 20251021
  Serious: Yes (Other)
  Sender: ORGANON
  Company Number: BR-ORGANON-O2508BRA001619

PATIENT
  Sex: Female

DRUGS (2)
  1. ETONOGESTREL [Suspect]
     Active Substance: ETONOGESTREL
     Route: 059
     Dates: start: 2024
  2. ETONOGESTREL [Concomitant]
     Active Substance: ETONOGESTREL
     Route: 059
     Dates: start: 20210928, end: 2024

REACTIONS (1)
  - Implant site thrombosis [Unknown]

NARRATIVE: CASE EVENT DATE: 20250601
